FAERS Safety Report 4272925-1 (Version None)
Quarter: 2004Q1

REPORT INFORMATION
  Report Type: 
  Country: None (occurrence: None)
  Receive Date: 20040114
  Receipt Date: 20031219
  Transmission Date: 20041129
  Serious: No
  Sender: FDA-Public Use
  Company Number: 2003180338JP

PATIENT
  Age: 78 Year
  Sex: Female

DRUGS (7)
  1. XALATAN [Suspect]
     Indication: INTRAOCULAR PRESSURE INCREASED
     Dosage: 1 GTT, QD, OPTHALMIC
     Route: 047
     Dates: start: 20030816, end: 20030930
  2. XALATAN [Suspect]
     Indication: INTRAOCULAR PRESSURE INCREASED
     Dosage: 1 GTT, QD, OPTHALMIC
     Route: 047
     Dates: start: 20031006
  3. TIMOPTOL [Concomitant]
  4. KARY UNI (PIRENOXINE) [Concomitant]
  5. TERRAMYCIN OPHTHALMIC OINTMENT (OXYTETRACYCLINE HYDROCHLORIDE) [Concomitant]
  6. SOLU-MEDROL [Concomitant]
  7. PREDNISOLONE [Concomitant]

REACTIONS (8)
  - CHOROIDAL DETACHMENT [None]
  - DRUG INEFFECTIVE [None]
  - EYE DISORDER [None]
  - EYE PAIN [None]
  - INTRAOCULAR PRESSURE INCREASED [None]
  - MYDRIASIS [None]
  - PNEUMONIA [None]
  - SCLERITIS [None]
